FAERS Safety Report 5995429-4 (Version None)
Quarter: 2008Q4

REPORT INFORMATION
  Report Type: 
  Country: None (occurrence: None)
  Receive Date: 20081212
  Receipt Date: 20080926
  Transmission Date: 20090506
  Serious: No
  Sender: FDA-Public Use
  Company Number: US-ABBOTT-08P-163-0478788-00

PATIENT
  Sex: Male
  Weight: 61.907 kg

DRUGS (3)
  1. HUMIRA [Suspect]
     Indication: PSORIASIS
     Dosage: LOADING DOSE
     Route: 058
     Dates: start: 20080925, end: 20080925
  2. HUMIRA [Suspect]
     Dosage: ONE WEEK AFTER LOADING DOSE
     Route: 058
  3. HUMIRA [Suspect]

REACTIONS (1)
  - INJECTION SITE PAIN [None]
